FAERS Safety Report 7146069 (Version 6)
Quarter: 2013Q4

REPORT INFORMATION
  Report Type: Report from Study
  Country: FR (occurrence: FR)
  Receive Date: 20091012
  Receipt Date: 20131219
  Transmission Date: 20140711
  Serious: Yes (Life-Threatening, Hospitalization)
  Sender: FDA-Public Use
  Company Number: FR-BIOGENIDEC-2009BI031736

PATIENT
  Age: 67 Year
  Sex: Male
  Weight: 67 kg

DRUGS (15)
  1. TYSABRI [Suspect]
     Indication: MULTIPLE SCLEROSIS
     Route: 042
     Dates: start: 20070620, end: 20090624
  2. TYSABRI [Suspect]
     Indication: MULTIPLE SCLEROSIS
     Route: 042
     Dates: start: 20091028
  3. MUSCLE RELAXANTS [Concomitant]
  4. METFORMIN [Concomitant]
  5. KARDEGIC [Concomitant]
  6. ZOXAN [Concomitant]
  7. ANALGESIC [Concomitant]
  8. PREVISCAN [Concomitant]
     Route: 048
  9. MOPRAL 20 [Concomitant]
  10. AMLOR [Concomitant]
  11. DANTRIUM [Concomitant]
  12. LIORESAL [Concomitant]
  13. XALATAN [Concomitant]
  14. ANTIHYPERTENSIVES [Concomitant]
  15. DICLOCIL [Concomitant]

REACTIONS (4)
  - Cerebrovascular accident [Recovered/Resolved]
  - Bronchopneumopathy [Recovered/Resolved]
  - Urinary tract infection [Recovered/Resolved]
  - Infection [Recovered/Resolved]
